FAERS Safety Report 6794752-3 (Version None)
Quarter: 2010Q2

REPORT INFORMATION
  Report Type: 
  Country: None (occurrence: None)
  Receive Date: 20100625
  Receipt Date: 20100330
  Transmission Date: 20101027
  Serious: Yes (Other)
  Sender: FDA-Public Use
  Company Number: US-ASTRAZENECA-2006UW09026

PATIENT
  Age: 11023 Day
  Sex: Male
  Weight: 69.4 kg

DRUGS (12)
  1. SEROQUEL [Suspect]
     Indication: SCHIZOAFFECTIVE DISORDER
     Route: 048
     Dates: start: 20040101, end: 20060201
  2. SEROQUEL [Suspect]
     Indication: BIPOLAR DISORDER
     Route: 048
     Dates: start: 20040101, end: 20060201
  3. SEROQUEL [Suspect]
     Route: 048
     Dates: start: 20040308
  4. SEROQUEL [Suspect]
     Route: 048
     Dates: start: 20040308
  5. RISPERDAL [Suspect]
     Dates: start: 19940101, end: 19990101
  6. RISPERDAL [Suspect]
     Dates: start: 20050601, end: 20050901
  7. ZYPREXA [Suspect]
     Indication: SCHIZOPHRENIA
     Dates: start: 19970401, end: 20031201
  8. DEPAKOTE ER [Concomitant]
     Dates: start: 20040308
  9. LIPITOR [Concomitant]
     Dates: start: 20031201
  10. ZOLOFT [Concomitant]
     Dates: start: 20031125
  11. ACCUPRIL [Concomitant]
     Dates: start: 20040127
  12. GEODON [Concomitant]
     Dates: start: 20040113

REACTIONS (6)
  - ANHEDONIA [None]
  - ANXIETY [None]
  - DIABETES MELLITUS [None]
  - DIABETIC NEUROPATHY [None]
  - ECONOMIC PROBLEM [None]
  - PAIN [None]
